FAERS Safety Report 9615597 (Version 2)
Quarter: 2014Q1

REPORT INFORMATION
  Report Type: Report from Study
  Country: US (occurrence: US)
  Receive Date: 20131011
  Receipt Date: 20140113
  Transmission Date: 20141002
  Serious: Yes (Death)
  Sender: FDA-Public Use
  Company Number: US-B.I. PHARMACEUTICALS,INC./RIDGEFIELD-2013-BI-32112BP

PATIENT
  Sex: Female

DRUGS (17)
  1. GILOTRIF [Suspect]
     Indication: NON-SMALL CELL LUNG CANCER METASTATIC
     Dosage: 40 MG
     Route: 048
     Dates: start: 20130912
  2. ALBUTEROL SULFATE [Concomitant]
     Indication: WHEEZING
     Dosage: 6 ANZ
     Route: 055
  3. CITALOPRAM  HYDROBROMIDE [Concomitant]
     Dosage: 20 MG
     Route: 048
  4. CODEINE-GUAIFENESIN [Concomitant]
     Indication: COUGH
     Dosage: 30 ML
     Route: 048
  5. DEXAMETHASONE [Concomitant]
     Dosage: 4 MG
     Route: 048
  6. DOXYCYCLINE HYCLATE [Concomitant]
     Dosage: 200 MG
     Route: 048
  7. FENTANYL [Concomitant]
     Dosage: FORMULATION: PATCH 100 MCG/HR
     Route: 062
  8. FENTANYL [Concomitant]
     Dosage: FORMULATION: PATCH 50 MCG/HR
     Route: 062
  9. HYDROMORPHONE HCL [Concomitant]
     Dosage: 32 MG
     Route: 048
  10. LIDOCAINE-PRILOCAINE [Concomitant]
     Dosage: 2.5-2.5% EX CREA, APPLY TO PAC SITE 1 HOUR PRIOR TO BEING ASSESSED
  11. LORAZEPAM [Concomitant]
     Dosage: DAILY DOSE: 1-2 TABLETS EVERY 4 HOURS
     Route: 048
  12. MIRTAZAPINE [Concomitant]
     Dosage: 15 MG
     Route: 048
  13. ONDANSETRON [Concomitant]
     Indication: NAUSEA
     Dosage: 24 MG
     Route: 048
  14. ONDANSETRON [Concomitant]
     Indication: VOMITING
  15. VORICONAZOLE [Concomitant]
     Dosage: 2 TABLETS EVERY 12 HOURSX 4 DOSES THEN 1 TABLET EVERY 12 HOURS
     Route: 048
  16. OXYCODONE HCL [Concomitant]
     Dosage: 120 MG
     Route: 048
  17. ARMODAFINIL (NUVIGIL) [Concomitant]
     Dosage: 150 MG
     Route: 048

REACTIONS (1)
  - Death [Fatal]
